FAERS Safety Report 4905894-9 (Version None)
Quarter: 2006Q1

REPORT INFORMATION
  Report Type: 
  Country: None (occurrence: None)
  Receive Date: 20060203
  Receipt Date: 20060120
  Transmission Date: 20060701
  Serious: Yes (Hospitalization)
  Sender: FDA-Public Use
  Company Number: 7155

PATIENT
  Age: 68 Year
  Sex: Male

DRUGS (3)
  1. PROPAFENONE 225 MG TABLETS, ETHEX [Suspect]
     Indication: HEART RATE IRREGULAR
     Dosage: 1 TABLET TID
     Dates: start: 20051101, end: 20060105
  2. TERAZOSIN [Concomitant]
  3. WARFARIN [Concomitant]

REACTIONS (8)
  - ARRHYTHMIA [None]
  - DIZZINESS [None]
  - HEART RATE IRREGULAR [None]
  - NIGHT SWEATS [None]
  - PHARYNGOLARYNGEAL PAIN [None]
  - PNEUMONIA [None]
  - TACHYCARDIA [None]
  - THERAPY NON-RESPONDER [None]
